FAERS Safety Report 13889873 (Version 3)
Quarter: 2017Q3

REPORT INFORMATION
  Report Type: Spontaneous
  Country: JP (occurrence: JP)
  Receive Date: 20170822
  Receipt Date: 20170929
  Transmission Date: 20171127
  Serious: Yes (Other)
  Sender: FDA-Public Use
  Company Number: JP-CONCORDIA PHARMACEUTICALS INC.-GSH201708-004771

PATIENT
  Age: 39 Year
  Sex: Male
  Weight: 63 kg

DRUGS (5)
  1. PREDNISOLONE. [Suspect]
     Active Substance: PREDNISOLONE
     Dosage: 5-10 MG / DAY PSL
  2. PREDNISOLONE. [Suspect]
     Active Substance: PREDNISOLONE
  3. PREDNISOLONE. [Suspect]
     Active Substance: PREDNISOLONE
     Indication: UVEITIS
     Route: 048
  4. METHOTREXATE. [Suspect]
     Active Substance: METHOTREXATE
     Indication: RHEUMATOID ARTHRITIS
  5. PREDNISOLONE. [Suspect]
     Active Substance: PREDNISOLONE
     Dosage: GRADUAL DECREASE OF PSL

REACTIONS (3)
  - Amyloidosis [Unknown]
  - Drug ineffective [Unknown]
  - Ankylosing spondylitis [Unknown]
